FAERS Safety Report 18311732 (Version 1)
Quarter: 2020Q3

REPORT INFORMATION
  Report Type: Spontaneous
  Country: FR (occurrence: FR)
  Receive Date: 20200925
  Receipt Date: 20200925
  Transmission Date: 20201103
  Serious: Yes (Hospitalization)
  Sender: FDA-Public Use
  Company Number: FR-TEVA-2020-FR-1830295

PATIENT
  Age: 84 Year
  Sex: Female
  Weight: 80.5 kg

DRUGS (15)
  1. ELIQUIS [Concomitant]
     Active Substance: APIXABAN
  2. BRICANYL [Concomitant]
     Active Substance: TERBUTALINE SULFATE
  3. DOLIPRANE [Concomitant]
     Active Substance: ACETAMINOPHEN
  4. ELIQUIS [Suspect]
     Active Substance: APIXABAN
     Indication: ATRIAL FIBRILLATION
     Dosage: 2 DOSAGE FORMS
     Route: 048
     Dates: end: 20200817
  5. INCRUSE ELLIPTA [Concomitant]
     Active Substance: UMECLIDINIUM BROMIDE
  6. SOLUPRED 20 MG, COMPRIME ORODISPERSIBLE [Suspect]
     Active Substance: PREDNISOLONE SODIUM METAZOATE
     Indication: CHRONIC OBSTRUCTIVE PULMONARY DISEASE
     Dosage: 3 DOSAGE FORMS
     Route: 048
     Dates: start: 20200811, end: 20200816
  7. FUROSEMIDE. [Concomitant]
     Active Substance: FUROSEMIDE
  8. OXEOL [Concomitant]
     Active Substance: BAMBUTEROL HYDROCHLORIDE
  9. ACICLOVIR [Concomitant]
     Active Substance: ACYCLOVIR
  10. LEVOFLOXACINE [Suspect]
     Active Substance: LEVOFLOXACIN
     Indication: LUNG DISORDER
     Dosage: 500MG THEN 250MG 1 / D, UNIT DOSE: 500MG
     Route: 048
     Dates: start: 20200809, end: 20200817
  11. ZELITREX 500 MG, COMPRIME ENROBE [Suspect]
     Active Substance: VALACYCLOVIR HYDROCHLORIDE
     Indication: HERPES ZOSTER
     Dosage: 6 DOSAGE FORMS
     Route: 048
     Dates: start: 20200811, end: 20200817
  12. PANTOPRAZOLE [Concomitant]
     Active Substance: PANTOPRAZOLE
  13. LYRICA [Suspect]
     Active Substance: PREGABALIN
     Indication: NEURALGIA
     Dosage: 2 DOSAGE FORMS
     Route: 048
     Dates: start: 20200811, end: 20200819
  14. IRBESARTAN. [Concomitant]
     Active Substance: IRBESARTAN
  15. CALCIDOSE VITAMINE D, POUDRE ORALE EN SACHET?DOSE [Concomitant]
     Active Substance: CALCIUM\CHOLECALCIFEROL

REACTIONS (3)
  - Gastric haemorrhage [Recovering/Resolving]
  - Anaemia [Recovering/Resolving]
  - Gastric ulcer [Recovering/Resolving]

NARRATIVE: CASE EVENT DATE: 20200817
